FAERS Safety Report 12092521 (Version 1)
Quarter: 2016Q1

REPORT INFORMATION
  Report Type: Spontaneous
  Country: US (occurrence: None)
  Receive Date: 20160217
  Receipt Date: 20160217
  Transmission Date: 20160526
  Serious: No
  Sender: FDA-Public Use
  Company Number: None

PATIENT
  Age: 27 Year
  Sex: Male
  Weight: 100.8 kg

DRUGS (5)
  1. CYTARABINE. [Suspect]
     Active Substance: CYTARABINE
     Dates: end: 20160114
  2. PREDNISONE. [Suspect]
     Active Substance: PREDNISONE
     Dates: end: 20160211
  3. METHOTREXATE [Suspect]
     Active Substance: METHOTREXATE
     Dates: end: 20160121
  4. VINCRISTINE SULFATE. [Suspect]
     Active Substance: VINCRISTINE SULFATE
     Dates: end: 20160204
  5. ONCASPAR [Suspect]
     Active Substance: PEGASPARGASE
     Dosage: 5400 UNIT
     Dates: end: 20160118

REACTIONS (4)
  - Blood pressure decreased [None]
  - Somnolence [None]
  - Pallor [None]
  - Adrenal insufficiency [None]

NARRATIVE: CASE EVENT DATE: 20160212
